FAERS Safety Report 23297293 (Version 4)
Quarter: 2024Q3

REPORT INFORMATION
  Report Type: Spontaneous
  Country: CA (occurrence: CA)
  Receive Date: 20231214
  Receipt Date: 20240703
  Transmission Date: 20241017
  Serious: Yes (Hospitalization, Other)
  Sender: OTSUKA
  Company Number: CA-OTSUKA-2023_032289

PATIENT
  Age: 74 Year
  Sex: Female

DRUGS (10)
  1. ARIPIPRAZOLE [Suspect]
     Active Substance: ARIPIPRAZOLE
     Indication: Psychotic symptom
     Dosage: 20 MG, QD (1 EVERY 1 DAYS)
     Route: 065
  2. ARIPIPRAZOLE [Suspect]
     Active Substance: ARIPIPRAZOLE
     Dosage: 30 MG, QD (1 EVERY 1 DAYS)
     Route: 065
  3. CLOZAPINE [Suspect]
     Active Substance: CLOZAPINE
     Indication: Schizophrenia
     Dosage: 150 MG, QD (1 EVERY 1 DAYS)
     Route: 065
  4. CLOZAPINE [Suspect]
     Active Substance: CLOZAPINE
     Dosage: 100 MG
     Route: 065
  5. CLOZAPINE [Suspect]
     Active Substance: CLOZAPINE
     Dosage: 50 MG, QD (1 EVERY 1 DAYS)
     Route: 065
  6. CLOZAPINE [Suspect]
     Active Substance: CLOZAPINE
     Dosage: 25 MG
     Route: 065
  7. MELATONIN [Concomitant]
     Active Substance: MELATONIN
     Indication: Insomnia
     Dosage: 3 MG, QD (1 EVERY 1 DAYS)
     Route: 065
  8. RIVAROXABAN [Concomitant]
     Active Substance: RIVAROXABAN
     Indication: Atrial fibrillation
     Dosage: 20 MG, QD (1 EVERY 1 DAYS)
     Route: 065
  9. ALENDRONATE [Concomitant]
     Active Substance: ALENDRONATE SODIUM
     Indication: Osteoporosis
     Dosage: 70 MG, QW (1 EVERY 1 WEEKS)
     Route: 065
  10. SENNOSIDES [Concomitant]
     Active Substance: SENNOSIDES
     Indication: Constipation
     Dosage: 12 MG, BID (2 EVERY 1 DAYS)
     Route: 065

REACTIONS (7)
  - Balance disorder [Recovered/Resolved]
  - C-reactive protein increased [Recovered/Resolved]
  - Psychotic symptom [Not Recovered/Not Resolved]
  - Leukocytosis [Recovered/Resolved]
  - Myoclonus [Recovered/Resolved]
  - Fall [Recovered/Resolved]
  - Drug ineffective for unapproved indication [Unknown]
